FAERS Safety Report 6558195-X (Version None)
Quarter: 2010Q1

REPORT INFORMATION
  Report Type: 
  Country: None (occurrence: None)
  Receive Date: 20100129
  Receipt Date: 20100120
  Transmission Date: 20100710
  Serious: Yes (Other)
  Sender: FDA-Public Use
  Company Number: US-BAXTER-2010BH001393

PATIENT
  Sex: Female

DRUGS (2)
  1. SUPRANE [Suspect]
     Indication: ANAESTHESIA
     Route: 055
     Dates: start: 20091026, end: 20091026
  2. OXYGEN [Suspect]
     Indication: ANAESTHESIA
     Route: 055
     Dates: start: 20091026, end: 20091026

REACTIONS (4)
  - BURNS THIRD DEGREE [None]
  - DISCOMFORT [None]
  - DRUG ADMINISTRATION ERROR [None]
  - PAIN [None]
